FAERS Safety Report 9861643 (Version 5)
Quarter: 2014Q2

REPORT INFORMATION
  Report Type: Report from Study
  Country: CA (occurrence: CA)
  Receive Date: 20140203
  Receipt Date: 20140424
  Transmission Date: 20141212
  Serious: Yes (Hospitalization)
  Sender: FDA-Public Use
  Company Number: CA-BRISTOL-MYERS SQUIBB COMPANY-19915925

PATIENT
  Age: 67 Year
  Sex: Female

DRUGS (11)
  1. ORENCIA [Suspect]
     Indication: RHEUMATOID ARTHRITIS
     Dosage: 1DF= 500 UNITS NOS
     Dates: start: 20090324, end: 20131113
  2. METHOTREXATE [Concomitant]
  3. LEUCOVORIN [Concomitant]
  4. FOLIC ACID [Concomitant]
  5. FOSAMAX [Concomitant]
  6. CALCIUM [Concomitant]
  7. CENTRUM [Concomitant]
  8. SPIRIVA [Concomitant]
  9. SYMBICORT [Concomitant]
  10. SALBUTAMOL [Concomitant]
  11. TYLENOL [Concomitant]

REACTIONS (5)
  - Dyspnoea [Not Recovered/Not Resolved]
  - Lower respiratory tract infection [Unknown]
  - Angina pectoris [Unknown]
  - Fatigue [Unknown]
  - Lung disorder [Unknown]
